FAERS Safety Report 10311070 (Version 1)
Quarter: 2014Q3

REPORT INFORMATION
  Report Type: Spontaneous
  Country: CA (occurrence: None)
  Receive Date: 20140715
  Receipt Date: 20140715
  Transmission Date: 20150326
  Serious: Yes (Hospitalization, Disabling, Other)
  Sender: FDA-Public Use
  Company Number: AXC-2014-000433

PATIENT
  Age: 57 Year
  Sex: Male
  Weight: 80 kg

DRUGS (1)
  1. SALOFALK (MESALAMINE) TABLET [Suspect]
     Active Substance: MESALAMINE
     Indication: PRODUCT USED FOR UNKNOWN INDICATION
     Route: 048

REACTIONS (10)
  - Dysarthria [None]
  - Rash [None]
  - Pyrexia [None]
  - Ataxia [None]
  - Confusional state [None]
  - Coordination abnormal [None]
  - Balance disorder [None]
  - Headache [None]
  - Rash vesicular [None]
  - Vision blurred [None]
